FAERS Safety Report 18773813 (Version 1)
Quarter: 2021Q1

REPORT INFORMATION
  Report Type: Spontaneous
  Country: US (occurrence: US)
  Receive Date: 20210122
  Receipt Date: 20210122
  Transmission Date: 20210419
  Serious: Yes (Death)
  Sender: FDA-Public Use
  Company Number: None

PATIENT
  Age: 69 Year
  Sex: Female

DRUGS (7)
  1. KISQALI FEMARA CO?PACK [Suspect]
     Active Substance: LETROZOLE\RIBOCICLIB
     Indication: BREAST CANCER
     Route: 048
     Dates: start: 20201105, end: 20201226
  2. POTASSIUM CL 20MEQ ER [Concomitant]
     Dates: start: 20201207, end: 20201226
  3. ONDANSETRON. [Concomitant]
     Active Substance: ONDANSETRON
     Dates: start: 20201222, end: 20201226
  4. DEXAMETHASONE 4MG [Concomitant]
     Active Substance: DEXAMETHASONE
     Dates: start: 20201221, end: 20201226
  5. AZITHROMYCIN 250 MG [Concomitant]
     Active Substance: AZITHROMYCIN ANHYDROUS
     Dates: start: 20201222, end: 20201226
  6. PANTOPRAZOLE 40MG [Concomitant]
     Active Substance: PANTOPRAZOLE SODIUM
     Dates: start: 20201209, end: 20201226
  7. NYSTATIN ORAL SUSPENSION 100000UNIT/ML [Concomitant]
     Dates: start: 20201222, end: 20201226

REACTIONS (1)
  - Death [None]

NARRATIVE: CASE EVENT DATE: 20201226
